FAERS Safety Report 21847337 (Version 2)
Quarter: 2023Q2

REPORT INFORMATION
  Report Type: Spontaneous
  Country: CA (occurrence: CA)
  Receive Date: 20230111
  Receipt Date: 20230406
  Transmission Date: 20230722
  Serious: Yes (Other)
  Sender: FDA-Public Use
  Company Number: CA-ORGANON-O2211CAN002578

PATIENT
  Age: 42 Year
  Sex: Female

DRUGS (30)
  1. SINGULAIR [Suspect]
     Active Substance: MONTELUKAST SODIUM
     Indication: Product used for unknown indication
     Dosage: UNK,NOT SPECIFIED
     Route: 065
  2. SINGULAIR [Suspect]
     Active Substance: MONTELUKAST SODIUM
     Dosage: 10 MILLIGRAM, 1 EVERY 1 DAY
     Route: 048
  3. SINGULAIR [Suspect]
     Active Substance: MONTELUKAST SODIUM
     Dosage: 1 DOSAGE FORM, 1 EVERY 1 DAYS
     Route: 065
  4. ATROVENT [Suspect]
     Active Substance: IPRATROPIUM BROMIDE
     Indication: Product used for unknown indication
     Dosage: UNK, NOT SPECIFIED
     Route: 065
  5. ATROVENT [Suspect]
     Active Substance: IPRATROPIUM BROMIDE
     Dosage: SOLUTION FOR INHALATION; DOSAGE FORM: NOT SPECIFIED
     Route: 065
  6. BUDESONIDE\FORMOTEROL FUMARATE [Suspect]
     Active Substance: BUDESONIDE\FORMOTEROL FUMARATE
     Indication: Product used for unknown indication
     Dosage: 4 DOSAGE FORM, 2 EVERY 1 DAY
     Route: 065
  7. BUDESONIDE\FORMOTEROL FUMARATE [Suspect]
     Active Substance: BUDESONIDE\FORMOTEROL FUMARATE
     Dosage: UNK, NOT SPECIFIED
  8. BUDESONIDE\FORMOTEROL FUMARATE [Suspect]
     Active Substance: BUDESONIDE\FORMOTEROL FUMARATE
     Dosage: UNK
  9. LEVOTHYROXINE [Suspect]
     Active Substance: LEVOTHYROXINE
     Indication: Product used for unknown indication
     Dosage: UNK
     Route: 065
  10. LIRAGLUTIDE [Suspect]
     Active Substance: LIRAGLUTIDE
     Indication: Product used for unknown indication
     Dosage: UNK
     Route: 065
  11. METFORMIN HYDROCHLORIDE [Suspect]
     Active Substance: METFORMIN HYDROCHLORIDE
     Indication: Product used for unknown indication
     Dosage: UNK
     Route: 065
  12. NUCALA [Suspect]
     Active Substance: MEPOLIZUMAB
     Indication: Asthma
     Dosage: 300 MILLIGRAM, 1 EVERY 4 WEEKS
     Route: 058
  13. NUCALA [Suspect]
     Active Substance: MEPOLIZUMAB
     Indication: Product used for unknown indication
     Dosage: UNK
     Route: 065
  14. PANTOPRAZOLE [Suspect]
     Active Substance: PANTOPRAZOLE
     Indication: Product used for unknown indication
     Dosage: UNK; DOSAGE FORM: NOT SPECIFIED
     Route: 065
  15. PANTOPRAZOLE [Suspect]
     Active Substance: PANTOPRAZOLE
     Dosage: 40 MILLIGRAM, 1 EVERY 1 DAY
     Route: 048
  16. PENICILLIN V POTASSIUM [Suspect]
     Active Substance: PENICILLIN V POTASSIUM
     Indication: Product used for unknown indication
     Dosage: UNK,(DOSAGE FORM: NOT SPECIFIED)
     Route: 065
  17. PREDNISONE [Suspect]
     Active Substance: PREDNISONE
     Indication: Product used for unknown indication
     Dosage: UNK, (DOSAGE FORM: NOT SPECIFIED)
     Route: 065
  18. PULMICORT TURBUHALER [Suspect]
     Active Substance: BUDESONIDE
     Indication: Product used for unknown indication
     Dosage: UNK NOT SPECIFIED
     Route: 065
  19. PULMICORT TURBUHALER [Suspect]
     Active Substance: BUDESONIDE
     Dosage: UNK, 2 EVERY 1 DAYS
     Route: 065
  20. PULMICORT TURBUHALER [Suspect]
     Active Substance: BUDESONIDE
     Dosage: 1 DOSAGE FORM
  21. RUPATADINE FUMARATE [Suspect]
     Active Substance: RUPATADINE FUMARATE
     Indication: Product used for unknown indication
     Dosage: 10 MILLIGRAM, 1 EVERY 1 DAY
     Route: 048
  22. RUPATADINE FUMARATE [Suspect]
     Active Substance: RUPATADINE FUMARATE
     Dosage: UNK
     Route: 065
  23. ALBUTEROL SULFATE [Suspect]
     Active Substance: ALBUTEROL SULFATE
     Indication: Asthma
     Dosage: UNK, 1 EVERY 1 DAY
  24. ALBUTEROL SULFATE [Suspect]
     Active Substance: ALBUTEROL SULFATE
     Dosage: UNK, 1 EVERY 1 DAYS
  25. ALBUTEROL SULFATE [Suspect]
     Active Substance: ALBUTEROL SULFATE
     Dosage: 2 DOSAGE FORM
  26. ALBUTEROL SULFATE [Suspect]
     Active Substance: ALBUTEROL SULFATE
     Dosage: UNK, NOT SPECIFIED
     Route: 065
  27. SERTRALINE HYDROCHLORIDE [Suspect]
     Active Substance: SERTRALINE HYDROCHLORIDE
     Indication: Product used for unknown indication
     Dosage: UNK
     Route: 065
  28. TIOTROPIUM BROMIDE MONOHYDRATE [Suspect]
     Active Substance: TIOTROPIUM BROMIDE MONOHYDRATE
     Indication: Product used for unknown indication
     Dosage: UNK; DOSAGE FORM: NOT SPECIFIED
     Route: 065
  29. TIOTROPIUM BROMIDE MONOHYDRATE [Suspect]
     Active Substance: TIOTROPIUM BROMIDE MONOHYDRATE
     Dosage: 1 EVERY 1 DAY
  30. TIOTROPIUM BROMIDE MONOHYDRATE [Suspect]
     Active Substance: TIOTROPIUM BROMIDE MONOHYDRATE
     Dosage: 2 DOSAGE FORM, 1 EVERY 1 DAY

REACTIONS (10)
  - Anxiety [Unknown]
  - Asthma [Unknown]
  - Dyspnoea [Unknown]
  - Full blood count abnormal [Unknown]
  - Hypothyroidism [Unknown]
  - Loss of personal independence in daily activities [Unknown]
  - Obstructive airways disorder [Unknown]
  - Sleep disorder due to a general medical condition [Unknown]
  - Therapeutic product effect incomplete [Unknown]
  - Wheezing [Unknown]
